FAERS Safety Report 17063691 (Version 1)
Quarter: 2019Q4

REPORT INFORMATION
  Report Type: Spontaneous
  Country: US (occurrence: US)
  Receive Date: 20191122
  Receipt Date: 20191122
  Transmission Date: 20200122
  Serious: No
  Sender: FDA-Public Use
  Company Number: US-ZYDUS-039700

PATIENT
  Sex: Female

DRUGS (1)
  1. BOSENTAN. [Suspect]
     Active Substance: BOSENTAN
     Indication: PULMONARY ARTERIAL HYPERTENSION
     Route: 048
     Dates: start: 20190702

REACTIONS (6)
  - Fatigue [Unknown]
  - Hypotension [Unknown]
  - Visual impairment [Unknown]
  - Anaemia [Unknown]
  - Intentional product use issue [Unknown]
  - Dizziness [Unknown]

NARRATIVE: CASE EVENT DATE: 2019
